FAERS Safety Report 14816432 (Version 1)
Quarter: 2018Q2

REPORT INFORMATION
  Report Type: Spontaneous
  Country: FR (occurrence: FR)
  Receive Date: 20180426
  Receipt Date: 20180426
  Transmission Date: 20180711
  Serious: Yes (Other)
  Sender: FDA-Public Use
  Company Number: FR-TEVA-2018-FR-886408

PATIENT
  Age: 72 Year
  Sex: Male

DRUGS (3)
  1. INEGY [Suspect]
     Active Substance: EZETIMIBE\SIMVASTATIN
     Route: 048
  2. KARDEGIC [Suspect]
     Active Substance: ASPIRIN DL-LYSINE
     Route: 048
  3. ATENOLOL. [Suspect]
     Active Substance: ATENOLOL
     Route: 048

REACTIONS (1)
  - Interstitial lung disease [Unknown]
